FAERS Safety Report 8758329 (Version 3)
Quarter: 2013Q3

REPORT INFORMATION
  Report Type: Spontaneous
  Country: JP (occurrence: None)
  Receive Date: 20120817
  Receipt Date: 20130703
  Transmission Date: 20140515
  Serious: Yes (Other)
  Sender: FDA-Public Use
  Company Number: VAL_00813_2012

PATIENT
  Sex: Male

DRUGS (3)
  1. ROCALTROL [Suspect]
     Indication: PRODUCT USED FOR UNKNOWN INDICATION
     Dosage: 0.25 UG 3X/ WEEK, ADMINISTERED AFTER HEMODIALYSIS (DOSAGE IS UNCERTAIN) ORAL
     Route: 048
  2. CALCIUM CARBONATE [Suspect]
     Indication: PRODUCT USED FOR UNKNOWN INDICATION
     Route: 048
  3. WARFARIN [Suspect]
     Indication: PRODUCT USED FOR UNKNOWN INDICATION
     Route: 048

REACTIONS (4)
  - Vascular calcification [None]
  - Anorectal discomfort [None]
  - Sensory disturbance [None]
  - Calciphylaxis [None]
